FAERS Safety Report 8962700 (Version 1)
Quarter: 2012Q4

REPORT INFORMATION
  Report Type: Spontaneous
  Country: GB (occurrence: None)
  Receive Date: 20121206
  Receipt Date: 20121206
  Transmission Date: 20130627
  Serious: Yes (Other)
  Sender: FDA-Public Use
  Company Number: 2012AP004083

PATIENT
  Age: 78 Year
  Sex: Male

DRUGS (5)
  1. RAMIPRIL (RAMIPRIL) [Suspect]
     Indication: HYPERTENSION
     Route: 048
     Dates: start: 20100803, end: 20121002
  2. ASPIRIN (ACETYLSALICYLIC ACID) [Concomitant]
  3. ATENOLOL (ATENOLOL) [Concomitant]
  4. NICORANDIL (NICORANDIL) [Concomitant]
  5. SIMVASTATIN (SIMVASTATIN) [Concomitant]

REACTIONS (3)
  - Bronchospasm [None]
  - Fatigue [None]
  - Rhinorrhoea [None]
